FAERS Safety Report 17266802 (Version 3)
Quarter: 2020Q1

REPORT INFORMATION
  Report Type: Spontaneous
  Country: FR (occurrence: FR)
  Receive Date: 20200114
  Receipt Date: 20200203
  Transmission Date: 20200409
  Serious: Yes (Hospitalization, Other)
  Sender: FDA-Public Use
  Company Number: FR-PFIZER INC-2020013106

PATIENT
  Age: 66 Year
  Sex: Female
  Weight: 93 kg

DRUGS (4)
  1. PACLITAXEL. [Suspect]
     Active Substance: PACLITAXEL
     Indication: LUNG NEOPLASM MALIGNANT
     Dosage: 234 MG, TOTAL (DOSE UNIQUE)
     Route: 041
     Dates: start: 20191122, end: 20191122
  2. CARBOPLATIN. [Suspect]
     Active Substance: CARBOPLATIN
     Indication: LUNG NEOPLASM MALIGNANT
     Dosage: 463 MILLIGRAM
     Route: 041
     Dates: start: 20191122, end: 20191122
  3. PANTOPRAZOLE [Suspect]
     Active Substance: PANTOPRAZOLE
     Indication: RADIATION OESOPHAGITIS
     Dosage: 80 MILLIGRAM, QD
     Route: 042
     Dates: start: 20191129, end: 20191211
  4. ZOPHREN [ONDANSETRON HYDROCHLORIDE] [Concomitant]
     Active Substance: ONDANSETRON
     Indication: VOMITING
     Dosage: UNK
     Route: 042
     Dates: start: 20191202, end: 20191221

REACTIONS (1)
  - Neutropenia [Recovered/Resolved]

NARRATIVE: CASE EVENT DATE: 20191211
